FAERS Safety Report 11844378 (Version 2)
Quarter: 2016Q1

REPORT INFORMATION
  Report Type: Spontaneous
  Country: CN (occurrence: CN)
  Receive Date: 20151217
  Receipt Date: 20160122
  Transmission Date: 20160526
  Serious: Yes (Hospitalization)
  Sender: FDA-Public Use
  Company Number: CN-ELI_LILLY_AND_COMPANY-CN201512002388

PATIENT
  Age: 58 Year
  Sex: Male
  Weight: 90 kg

DRUGS (6)
  1. HUMULIN R [Suspect]
     Active Substance: INSULIN HUMAN
     Dosage: 15 DF, QD
     Route: 058
     Dates: start: 2012, end: 201509
  2. HUMALOG [Suspect]
     Active Substance: INSULIN LISPRO
     Dosage: 14 DF, EACH EVENING
     Route: 058
     Dates: start: 201509
  3. HUMULIN R [Suspect]
     Active Substance: INSULIN HUMAN
     Indication: DIABETES MELLITUS
     Dosage: 18 DF, BID
     Route: 058
     Dates: start: 2012, end: 201509
  4. HUMALOG [Suspect]
     Active Substance: INSULIN LISPRO
     Dosage: 10 DF, QD
     Route: 058
     Dates: start: 201509
  5. LANTUS [Concomitant]
     Active Substance: INSULIN GLARGINE
     Indication: PRODUCT USED FOR UNKNOWN INDICATION
     Dosage: UNK UNK, UNKNOWN
     Route: 065
  6. HUMALOG [Suspect]
     Active Substance: INSULIN LISPRO
     Indication: DIABETES MELLITUS
     Dosage: 20 DF, EACH MORNING
     Route: 058
     Dates: start: 201509

REACTIONS (1)
  - Malignant melanoma stage I [Recovering/Resolving]

NARRATIVE: CASE EVENT DATE: 201509
